FAERS Safety Report 11275695 (Version 1)
Quarter: 2015Q2

REPORT INFORMATION
  Report Type: Spontaneous
  Country: US (occurrence: None)
  Receive Date: 20150625
  Receipt Date: 20150625
  Transmission Date: 20150821
  Serious: Yes (Disabling)
  Sender: FDA-Public Use
  Company Number: PHEH2014US024542

PATIENT
  Age: 54 Year
  Sex: Male

DRUGS (5)
  1. LOVENOX [Concomitant]
     Active Substance: ENOXAPARIN SODIUM
  2. ZANTAC [Concomitant]
     Active Substance: RANITIDINE HYDROCHLORIDE
  3. ZYKADIA [Suspect]
     Active Substance: CERITINIB
     Indication: NON-SMALL CELL LUNG CANCER
     Dosage: 5 DF (750 MG), QD, ORAL
     Route: 048
     Dates: start: 20141125, end: 20141210
  4. OXYCODONE [Concomitant]
     Active Substance: OXYCODONE
  5. APAP (PARACETAMOL) [Concomitant]

REACTIONS (5)
  - Nausea [None]
  - Retching [None]
  - Fatigue [None]
  - Poor quality sleep [None]
  - Abdominal pain [None]

NARRATIVE: CASE EVENT DATE: 20141203
